FAERS Safety Report 16462019 (Version 1)
Quarter: 2019Q2

REPORT INFORMATION
  Report Type: Spontaneous
  Country: CA (occurrence: CA)
  Receive Date: 20190621
  Receipt Date: 20190621
  Transmission Date: 20190711
  Serious: Yes (Other)
  Sender: FDA-Public Use
  Company Number: CA-TEVA-2019-CA-1066480

PATIENT
  Age: 83 Year
  Sex: Female
  Weight: 59.02 kg

DRUGS (3)
  1. HYDROCHLOROTHIAZIDE/OLMESARTAN MEDOXOMIL [Suspect]
     Active Substance: HYDROCHLOROTHIAZIDE\OLMESARTAN MEDOXOMIL
     Dosage: 1 DOSAGE FORMS DAILY;
  2. ACTONEL [Concomitant]
     Active Substance: RISEDRONATE SODIUM
  3. ATENOLOL TABLETS, BP [Concomitant]
     Active Substance: ATENOLOL

REACTIONS (5)
  - Syncope [Recovered/Resolved]
  - Vertigo [Recovered/Resolved]
  - Blood pressure decreased [Recovered/Resolved]
  - Product substitution issue [Recovered/Resolved]
  - Dizziness [Recovered/Resolved]
